FAERS Safety Report 7130879-4 (Version None)
Quarter: 2010Q4

REPORT INFORMATION
  Report Type: 
  Country: None (occurrence: None)
  Receive Date: 20101201
  Receipt Date: 20101123
  Transmission Date: 20110411
  Serious: Yes (Other)
  Sender: FDA-Public Use
  Company Number: DE-ROCHE-744931

PATIENT
  Sex: Female

DRUGS (5)
  1. ROACTEMRA [Suspect]
     Route: 042
     Dates: start: 20100925, end: 20100925
  2. ARAVA [Concomitant]
  3. QUENSYL [Concomitant]
     Route: 048
  4. CALCIUM [Concomitant]
  5. VITAMIN D [Concomitant]

REACTIONS (4)
  - OEDEMA [None]
  - PRURITUS [None]
  - RASH PUSTULAR [None]
  - SKIN BURNING SENSATION [None]
